FAERS Safety Report 14603407 (Version 1)
Quarter: 2018Q1

REPORT INFORMATION
  Report Type: Spontaneous
  Country: CN (occurrence: CN)
  Receive Date: 20180306
  Receipt Date: 20180306
  Transmission Date: 20180509
  Serious: Yes (Hospitalization, Other)
  Sender: FDA-Public Use
  Company Number: CN-MYLANLABS-2018M1014103

PATIENT
  Age: 26 Year
  Sex: Female

DRUGS (3)
  1. POTASSIUM ASPARTATE [Concomitant]
     Active Substance: POTASSIUM ASPARTATE
     Indication: LONG QT SYNDROME CONGENITAL
     Dosage: 474 MG/DAY
     Route: 048
  2. MAGNESIUM ASPARTATE [Concomitant]
     Active Substance: MAGNESIUM ASPARTATE
     Indication: LONG QT SYNDROME CONGENITAL
     Dosage: 420 MG/DAY
     Route: 048
  3. PROPRANOLOL [Suspect]
     Active Substance: PROPRANOLOL HYDROCHLORIDE
     Indication: LONG QT SYNDROME CONGENITAL
     Dosage: 30 MG/DAY
     Route: 048

REACTIONS (4)
  - Ventricular extrasystoles [Recovered/Resolved]
  - Torsade de pointes [Recovered/Resolved]
  - Disease recurrence [Recovered/Resolved]
  - Electrocardiogram QT prolonged [Recovered/Resolved]
